FAERS Safety Report 11310633 (Version 2)
Quarter: 2015Q3

REPORT INFORMATION
  Report Type: Spontaneous
  Country: FR (occurrence: FR)
  Receive Date: 20150725
  Receipt Date: 20150728
  Transmission Date: 20151125
  Serious: Yes (Hospitalization)
  Sender: FDA-Public Use
  Company Number: FR-ABBVIE-15K-056-1429395-00

PATIENT
  Age: 53 Year
  Sex: Male
  Weight: 77 kg

DRUGS (3)
  1. PENTASA [Suspect]
     Active Substance: MESALAMINE
     Route: 065
     Dates: start: 201505
  2. PENTASA [Suspect]
     Active Substance: MESALAMINE
     Indication: PRODUCT USED FOR UNKNOWN INDICATION
     Route: 065
     Dates: end: 201503
  3. HUMIRA [Suspect]
     Active Substance: ADALIMUMAB
     Indication: PRODUCT USED FOR UNKNOWN INDICATION
     Route: 058
     Dates: start: 201302, end: 201412

REACTIONS (14)
  - Aspartate aminotransferase increased [Unknown]
  - Hyporeflexia [Unknown]
  - Aldolase increased [Unknown]
  - Alanine aminotransferase increased [Unknown]
  - Eosinophilia [Recovered/Resolved]
  - Anal fistula [Unknown]
  - Eosinophil count increased [Not Recovered/Not Resolved]
  - Arthralgia [Not Recovered/Not Resolved]
  - Rash [Unknown]
  - Antineutrophil cytoplasmic antibody positive [Unknown]
  - Muscle spasms [Unknown]
  - Nuclear magnetic resonance imaging abnormal [Unknown]
  - Myalgia [Not Recovered/Not Resolved]
  - Musculoskeletal stiffness [Unknown]

NARRATIVE: CASE EVENT DATE: 201410
